FAERS Safety Report 17716627 (Version 31)
Quarter: 2023Q1

REPORT INFORMATION
  Report Type: Report from Study
  Country: JP (occurrence: JP)
  Receive Date: 20200428
  Receipt Date: 20230314
  Transmission Date: 20230418
  Serious: Yes (Other)
  Sender: FDA-Public Use
  Company Number: JP-ONO-2020JP010115

PATIENT
  Age: 60 Year
  Sex: Female
  Weight: 60 kg

DRUGS (71)
  1. ETELCALCETIDE [Suspect]
     Active Substance: ETELCALCETIDE
     Indication: Hyperparathyroidism secondary
     Dosage: 5 MILLIGRAM, Q84H
     Route: 010
     Dates: start: 20190902, end: 20190906
  2. ETELCALCETIDE [Suspect]
     Active Substance: ETELCALCETIDE
     Dosage: 5 MILLIGRAM, Q56H
     Route: 010
     Dates: start: 20190909, end: 20200219
  3. ETELCALCETIDE [Suspect]
     Active Substance: ETELCALCETIDE
     Dosage: 5 MILLIGRAM, QWK
     Route: 010
     Dates: start: 20200221, end: 20200417
  4. ETELCALCETIDE [Suspect]
     Active Substance: ETELCALCETIDE
     Dosage: 10 MILLIGRAM, Q84H
     Route: 010
     Dates: start: 20200221, end: 20200417
  5. ETELCALCETIDE [Suspect]
     Active Substance: ETELCALCETIDE
     Dosage: 5 MILLIGRAM, Q56H
     Route: 010
     Dates: start: 20201023, end: 20210222
  6. ETELCALCETIDE [Suspect]
     Active Substance: ETELCALCETIDE
     Dosage: 5 MILLIGRAM, Q56H
     Route: 010
     Dates: start: 20210224, end: 20210910
  7. ETELCALCETIDE [Suspect]
     Active Substance: ETELCALCETIDE
     Dosage: 2.5 MILLIGRAM, Q56H
     Route: 010
     Dates: start: 20210913, end: 20211008
  8. ETELCALCETIDE [Suspect]
     Active Substance: ETELCALCETIDE
     Dosage: 2.5 MILLIGRAM, Q84H
     Route: 010
     Dates: start: 20211011, end: 20220415
  9. ETELCALCETIDE [Suspect]
     Active Substance: ETELCALCETIDE
     Dosage: 2.5 MILLIGRAM, Q56H
     Route: 010
     Dates: start: 20220418
  10. DARBEPOETIN ALFA [Concomitant]
     Active Substance: DARBEPOETIN ALFA
     Dosage: 20 MICROGRAM, QWK
     Route: 065
     Dates: start: 20220401, end: 20220429
  11. DARBEPOETIN ALFA [Concomitant]
     Active Substance: DARBEPOETIN ALFA
     Dosage: 15 MICROGRAM, QWK
     Route: 065
     Dates: start: 20220506, end: 20220513
  12. DARBEPOETIN ALFA [Concomitant]
     Active Substance: DARBEPOETIN ALFA
     Dosage: 10 MICROGRAM, QWK
     Route: 065
     Dates: start: 20220520, end: 20220624
  13. DARBEPOETIN ALFA [Concomitant]
     Active Substance: DARBEPOETIN ALFA
     Dosage: 5 MICROGRAM, QWK
     Route: 065
     Dates: start: 20220701, end: 20220909
  14. DARBEPOETIN ALFA [Concomitant]
     Active Substance: DARBEPOETIN ALFA
     Dosage: 10 MICROGRAM, QWK
     Route: 065
     Dates: start: 20220916, end: 20220923
  15. DARBEPOETIN ALFA [Concomitant]
     Active Substance: DARBEPOETIN ALFA
     Dosage: 15 MICROGRAM, QWK
     Route: 065
     Dates: start: 20220930
  16. ALFAROL [Concomitant]
     Active Substance: ALFACALCIDOL
     Dosage: 0.25 MICROGRAM, QD
     Route: 048
     Dates: end: 20200214
  17. ALFAROL [Concomitant]
     Active Substance: ALFACALCIDOL
     Dosage: 0.5 MICROGRAM, QD
     Route: 048
     Dates: start: 20200215, end: 20220429
  18. ALFAROL [Concomitant]
     Active Substance: ALFACALCIDOL
     Dosage: 1 UG, EVERYDAY
     Route: 048
     Dates: start: 20220430, end: 20220527
  19. ALFAROL [Concomitant]
     Active Substance: ALFACALCIDOL
     Dosage: 0.25 UG, EVERYDAY
     Route: 048
     Dates: end: 20200214
  20. ALFAROL [Concomitant]
     Active Substance: ALFACALCIDOL
     Dosage: 0.5 UG, EVERYDAY
     Dates: start: 20200215, end: 20220429
  21. ALFAROL [Concomitant]
     Active Substance: ALFACALCIDOL
     Dosage: 0.25 UG, EVERYDAY
     Route: 048
     Dates: end: 20200214
  22. ALFAROL [Concomitant]
     Active Substance: ALFACALCIDOL
     Dosage: 0.5 UG, EVERYDAY
     Dates: start: 20200215, end: 20220429
  23. CALCIUM CARBONATE [Concomitant]
     Active Substance: CALCIUM CARBONATE
     Dosage: 4500 MG, EVERYDAY
     Route: 048
  24. P-tol [Concomitant]
     Dosage: 1500 MG, EVERYDAY
     Route: 048
     Dates: start: 20190928, end: 20191220
  25. P-tol [Concomitant]
     Dosage: 2000 MG, EVERYDAY
     Route: 048
     Dates: start: 20191221, end: 20220429
  26. P-tol [Concomitant]
     Dosage: 1000 MG, EVERYDAY
     Route: 048
     Dates: start: 20190803, end: 20190927
  27. WARFARIN [Concomitant]
     Active Substance: WARFARIN
     Dosage: 3.75 MG
     Route: 048
  28. MIRCERA [Concomitant]
     Active Substance: METHOXY POLYETHYLENE GLYCOL-EPOETIN BETA
     Dosage: 75 MUG, Q4W
     Route: 065
     Dates: end: 20190726
  29. MIRCERA [Concomitant]
     Active Substance: METHOXY POLYETHYLENE GLYCOL-EPOETIN BETA
     Dosage: 37.5 MUG, Q4W
     Route: 065
     Dates: start: 20190809, end: 20190823
  30. MIRCERA [Concomitant]
     Active Substance: METHOXY POLYETHYLENE GLYCOL-EPOETIN BETA
     Dosage: 25 MUG, Q4W
     Route: 065
     Dates: start: 20190913, end: 20190927
  31. MIRCERA [Concomitant]
     Active Substance: METHOXY POLYETHYLENE GLYCOL-EPOETIN BETA
     Dosage: 37.5 MUG, Q4W
     Route: 065
     Dates: start: 20191011, end: 20191025
  32. MIRCERA [Concomitant]
     Active Substance: METHOXY POLYETHYLENE GLYCOL-EPOETIN BETA
     Dosage: 100 MUG, Q4W
     Route: 065
     Dates: start: 20191108, end: 20191122
  33. MIRCERA [Concomitant]
     Active Substance: METHOXY POLYETHYLENE GLYCOL-EPOETIN BETA
     Dosage: 125 MUG, Q4W
     Route: 065
     Dates: start: 20191213, end: 20191227
  34. MIRCERA [Concomitant]
     Active Substance: METHOXY POLYETHYLENE GLYCOL-EPOETIN BETA
     Dosage: 37.5 MUG, Q4W
     Route: 065
     Dates: start: 20200110, end: 20200124
  35. MIRCERA [Concomitant]
     Active Substance: METHOXY POLYETHYLENE GLYCOL-EPOETIN BETA
     Dosage: 12.5 MUG, Q4W
     Route: 065
     Dates: start: 20200214, end: 20200228
  36. MIRCERA [Concomitant]
     Active Substance: METHOXY POLYETHYLENE GLYCOL-EPOETIN BETA
     Dosage: 25 MUG, Q4W
     Route: 065
     Dates: start: 20200313, end: 20200327
  37. MIRCERA [Concomitant]
     Active Substance: METHOXY POLYETHYLENE GLYCOL-EPOETIN BETA
     Dosage: 37.5 MUG, Q4W
     Route: 065
     Dates: start: 20200410, end: 20200424
  38. MIRCERA [Concomitant]
     Active Substance: METHOXY POLYETHYLENE GLYCOL-EPOETIN BETA
     Dosage: 50 MUG, Q4W
     Route: 065
     Dates: start: 20200508, end: 20200522
  39. MIRCERA [Concomitant]
     Active Substance: METHOXY POLYETHYLENE GLYCOL-EPOETIN BETA
     Dosage: 50 MUG, Q4W
     Route: 065
     Dates: start: 20200612, end: 20200626
  40. MIRCERA [Concomitant]
     Active Substance: METHOXY POLYETHYLENE GLYCOL-EPOETIN BETA
     Dosage: 75 MUG, Q4W
     Route: 065
     Dates: start: 20200710, end: 20200724
  41. MIRCERA [Concomitant]
     Active Substance: METHOXY POLYETHYLENE GLYCOL-EPOETIN BETA
     Dosage: 100 MUG, Q4W
     Route: 065
     Dates: start: 20200814, end: 20200828
  42. MIRCERA [Concomitant]
     Active Substance: METHOXY POLYETHYLENE GLYCOL-EPOETIN BETA
     Dosage: 50 MUG, Q4W
     Route: 065
     Dates: start: 20200911, end: 20200925
  43. MIRCERA [Concomitant]
     Active Substance: METHOXY POLYETHYLENE GLYCOL-EPOETIN BETA
     Dosage: 50 MUG, Q4W
     Route: 065
     Dates: start: 20201009, end: 20201030
  44. MIRCERA [Concomitant]
     Active Substance: METHOXY POLYETHYLENE GLYCOL-EPOETIN BETA
     Dosage: 37.5 MUG, Q4W
     Route: 065
     Dates: start: 20201113, end: 20210122
  45. MIRCERA [Concomitant]
     Active Substance: METHOXY POLYETHYLENE GLYCOL-EPOETIN BETA
     Dosage: 50 MUG, Q4W
     Route: 065
     Dates: start: 20210212, end: 20210423
  46. MIRCERA [Concomitant]
     Active Substance: METHOXY POLYETHYLENE GLYCOL-EPOETIN BETA
     Dosage: 37.5 MG, Q4W
     Route: 065
     Dates: start: 20210507, end: 20210618
  47. MIRCERA [Concomitant]
     Active Substance: METHOXY POLYETHYLENE GLYCOL-EPOETIN BETA
     Dosage: 50 UG, Q4W
     Route: 065
     Dates: start: 20210702, end: 20210730
  48. MIRCERA [Concomitant]
     Active Substance: METHOXY POLYETHYLENE GLYCOL-EPOETIN BETA
     Dosage: 50 UG, Q4W
     Route: 065
     Dates: start: 20210806, end: 20210827
  49. MIRCERA [Concomitant]
     Active Substance: METHOXY POLYETHYLENE GLYCOL-EPOETIN BETA
     Dosage: 25 UG, Q4W
     Route: 065
     Dates: start: 20210903, end: 20210924
  50. MIRCERA [Concomitant]
     Active Substance: METHOXY POLYETHYLENE GLYCOL-EPOETIN BETA
     Dosage: 37.5 UG, Q4W
     Route: 065
     Dates: start: 20211105, end: 20211231
  51. MIRCERA [Concomitant]
     Active Substance: METHOXY POLYETHYLENE GLYCOL-EPOETIN BETA
     Dosage: 50 UG, Q4W
     Route: 065
     Dates: start: 20220107, end: 20220128
  52. MIRCERA [Concomitant]
     Active Substance: METHOXY POLYETHYLENE GLYCOL-EPOETIN BETA
     Dosage: 25 UG, Q4W
     Route: 065
     Dates: start: 20220204, end: 20220204
  53. MIRCERA [Concomitant]
     Active Substance: METHOXY POLYETHYLENE GLYCOL-EPOETIN BETA
     Dosage: 50 UG, Q4W
     Route: 065
     Dates: start: 20220218, end: 20220304
  54. MIRCERA [Concomitant]
     Active Substance: METHOXY POLYETHYLENE GLYCOL-EPOETIN BETA
     Dosage: 25 UG, Q4W
     Route: 065
     Dates: start: 20220325, end: 20220325
  55. Fesin [Concomitant]
     Dosage: 40 MG, QW
     Route: 065
     Dates: start: 20190715, end: 20190805
  56. Fesin [Concomitant]
     Dosage: 40 MG, QW
     Route: 065
     Dates: start: 20191028, end: 20191118
  57. Fesin [Concomitant]
     Dosage: 40 MG, QW
     Route: 065
     Dates: start: 20200427, end: 20200518
  58. Fesin [Concomitant]
     Dosage: 40 MG, QW
     Route: 065
     Dates: start: 20200713, end: 20200803
  59. Fesin [Concomitant]
     Dosage: 40 MG, QW
     Route: 065
     Dates: start: 20201116, end: 20201207
  60. Fesin [Concomitant]
     Dosage: 40 MG, QW
     Route: 065
     Dates: start: 20210315, end: 20210405
  61. Fesin [Concomitant]
     Dosage: 40 MG, QW
     Route: 065
     Dates: start: 20210531, end: 20210621
  62. Fesin [Concomitant]
     Dosage: 40 MG, QW
     Route: 065
     Dates: start: 20211108, end: 20211129
  63. Fesin [Concomitant]
     Dosage: 40 MG, QW
     Route: 065
     Dates: start: 20220321, end: 20220418
  64. Fesin [Concomitant]
     Dosage: 40 MG, QW
     Route: 065
     Dates: start: 20220530, end: 20220620
  65. Fesin [Concomitant]
     Dosage: 40 MG, QW
     Route: 065
     Dates: start: 20221114, end: 20221130
  66. DARBEPOETIN ALFA(GENETICAL RECOMBINATION) [Concomitant]
     Dosage: 20 UG, QW
     Route: 065
     Dates: start: 20220401, end: 20220429
  67. DARBEPOETIN ALFA(GENETICAL RECOMBINATION) [Concomitant]
     Dosage: 15 UG, QW
     Dates: start: 20220506, end: 20220513
  68. DARBEPOETIN ALFA(GENETICAL RECOMBINATION) [Concomitant]
     Dosage: 10 UG, QW
     Dates: start: 20220520, end: 20220624
  69. DARBEPOETIN ALFA(GENETICAL RECOMBINATION) [Concomitant]
     Dosage: 5 UG, QW
     Dates: start: 20220701, end: 20220909
  70. DARBEPOETIN ALFA(GENETICAL RECOMBINATION) [Concomitant]
     Dosage: 10 UG, QW
     Dates: start: 20220916, end: 20220923
  71. DARBEPOETIN ALFA(GENETICAL RECOMBINATION) [Concomitant]
     Dosage: 15 UG, QW
     Dates: start: 20220930

REACTIONS (28)
  - Shunt occlusion [Recovered/Resolved]
  - Shunt occlusion [Recovered/Resolved]
  - Shunt infection [Recovered/Resolved]
  - Shunt occlusion [Recovered/Resolved]
  - Shunt occlusion [Recovered/Resolved]
  - Shunt occlusion [Recovered/Resolved]
  - Shunt occlusion [Recovered/Resolved]
  - Shunt occlusion [Recovered/Resolved]
  - Shunt occlusion [Recovered/Resolved]
  - Shunt occlusion [Recovered/Resolved]
  - Shunt infection [Recovered/Resolved]
  - Shunt occlusion [Recovered/Resolved]
  - Shunt occlusion [Recovered/Resolved]
  - Shunt occlusion [Recovered/Resolved]
  - Shunt occlusion [Recovered/Resolved]
  - Shunt stenosis [Recovered/Resolved]
  - Shunt stenosis [Recovered/Resolved]
  - Shunt stenosis [Recovered/Resolved]
  - Shunt stenosis [Recovered/Resolved]
  - Shunt stenosis [Recovered/Resolved]
  - Shunt stenosis [Recovered/Resolved]
  - Shunt stenosis [Recovered/Resolved]
  - Shunt stenosis [Recovered/Resolved]
  - Shunt stenosis [Recovered/Resolved]
  - Shunt stenosis [Recovered/Resolved]
  - Shunt stenosis [Recovered/Resolved]
  - Prothrombin time abnormal [Unknown]
  - Shunt occlusion [Recovered/Resolved]

NARRATIVE: CASE EVENT DATE: 20191004
